FAERS Safety Report 9862485 (Version 1)
Quarter: 2014Q1

REPORT INFORMATION
  Report Type: Spontaneous
  Country: US (occurrence: US)
  Receive Date: 20140203
  Receipt Date: 20140203
  Transmission Date: 20141002
  Serious: No
  Sender: FDA-Public Use
  Company Number: US-BAYER-2014-016905

PATIENT
  Age: 40 Year
  Sex: Male

DRUGS (1)
  1. GADAVIST [Suspect]
     Indication: NUCLEAR MAGNETIC RESONANCE IMAGING
     Dosage: 19 ML, ONCE
     Route: 042
     Dates: start: 20140130, end: 20140130

REACTIONS (4)
  - Throat irritation [None]
  - Sneezing [None]
  - Cough [None]
  - Headache [None]
